FAERS Safety Report 14709958 (Version 1)
Quarter: 2018Q2

REPORT INFORMATION
  Report Type: Spontaneous
  Country: FR (occurrence: FR)
  Receive Date: 20180403
  Receipt Date: 20180403
  Transmission Date: 20180711
  Serious: Yes (Death)
  Sender: FDA-Public Use
  Company Number: FR-009507513-1804FRA000392

PATIENT
  Age: 74 Year
  Sex: Male
  Weight: 100 kg

DRUGS (2)
  1. ESMERON [Suspect]
     Active Substance: ROCURONIUM BROMIDE
     Indication: ANAESTHESIA
     Dosage: 100 MG, UNK
     Route: 042
     Dates: start: 20171114
  2. SUFENTANIL [Suspect]
     Active Substance: SUFENTANIL
     Indication: ANAESTHESIA
     Dosage: 15 MICROGRAM, UNK
     Route: 042
     Dates: start: 20171114

REACTIONS (1)
  - Anaphylactic shock [Fatal]

NARRATIVE: CASE EVENT DATE: 20171114
